FAERS Safety Report 10063519 (Version 1)
Quarter: 2014Q2

REPORT INFORMATION
  Report Type: Spontaneous
  Country: US (occurrence: US)
  Receive Date: 20140407
  Receipt Date: 20140407
  Transmission Date: 20141212
  Serious: Yes (Hospitalization)
  Sender: FDA-Public Use
  Company Number: US-ELI_LILLY_AND_COMPANY-US201403010383

PATIENT
  Sex: Female

DRUGS (6)
  1. HUMALOG LISPRO [Suspect]
     Indication: TYPE 1 DIABETES MELLITUS
     Dosage: UNK UNK, TID
     Route: 065
  2. LANTUS [Concomitant]
     Dosage: UNK, EACH MORNING
  3. VITAMIN C                          /00008001/ [Concomitant]
  4. VITAMIN D                          /00107901/ [Concomitant]
  5. RAMIPRIL [Concomitant]
  6. COREG [Concomitant]

REACTIONS (1)
  - Cataract [Recovering/Resolving]
